FAERS Safety Report 7776793-2 (Version None)
Quarter: 2011Q3

REPORT INFORMATION
  Report Type: 
  Country: None (occurrence: None)
  Receive Date: 20110923
  Receipt Date: 20110923
  Transmission Date: 20111222
  Serious: Yes (Hospitalization)
  Sender: FDA-Public Use
  Company Number: None

PATIENT
  Sex: Female
  Weight: 72.2 kg

DRUGS (2)
  1. CARBOPLATIN [Suspect]
     Dosage: 568 MG
     Dates: end: 20110902
  2. TAXOL [Suspect]
     Dosage: 296 MG
     Dates: end: 20110909

REACTIONS (8)
  - HYPOCALCAEMIA [None]
  - ANAEMIA [None]
  - HYPOKALAEMIA [None]
  - HYPOMAGNESAEMIA [None]
  - DIARRHOEA [None]
  - LEUKOPENIA [None]
  - WEIGHT DECREASED [None]
  - SINUS TACHYCARDIA [None]
